FAERS Safety Report 13855007 (Version 2)
Quarter: 2017Q3

REPORT INFORMATION
  Report Type: Spontaneous
  Country: US (occurrence: US)
  Receive Date: 20170810
  Receipt Date: 20170915
  Transmission Date: 20171127
  Serious: Yes (Other)
  Sender: FDA-Public Use
  Company Number: US-ASTELLAS-2017US031180

PATIENT
  Age: 83 Year
  Sex: Male

DRUGS (1)
  1. VESICARE [Suspect]
     Active Substance: SOLIFENACIN SUCCINATE
     Indication: URINARY INCONTINENCE
     Route: 048
     Dates: start: 201701

REACTIONS (4)
  - Arthropathy [Recovered/Resolved]
  - Knee arthroplasty [Recovered/Resolved]
  - Carpal tunnel syndrome [Not Recovered/Not Resolved]
  - Carpal tunnel decompression [Not Recovered/Not Resolved]

NARRATIVE: CASE EVENT DATE: 2017
